FAERS Safety Report 17909848 (Version 2)
Quarter: 2020Q2

REPORT INFORMATION
  Report Type: Spontaneous
  Country: US (occurrence: US)
  Receive Date: 20200617
  Receipt Date: 20200629
  Transmission Date: 20200714
  Serious: Yes (Other)
  Sender: FDA-Public Use
  Company Number: US-BIOMARINAP-US-2020-130691

PATIENT

DRUGS (1)
  1. BRINEURA [Suspect]
     Active Substance: CERLIPONASE ALFA
     Indication: NEURONAL CEROID LIPOFUSCINOSIS
     Dosage: UNK
     Route: 020
     Dates: start: 20190214

REACTIONS (4)
  - Product dose omission [Unknown]
  - Meningitis [Unknown]
  - Device related infection [Unknown]
  - Needle issue [Unknown]

NARRATIVE: CASE EVENT DATE: 202006
